FAERS Safety Report 23894740 (Version 1)
Quarter: 2024Q2

REPORT INFORMATION
  Report Type: Spontaneous
  Country: HU (occurrence: HU)
  Receive Date: 20240524
  Receipt Date: 20240524
  Transmission Date: 20240716
  Serious: Yes (Hospitalization)
  Sender: FDA-Public Use
  Company Number: HU-EMA-DD-20220718-7180173-111113

PATIENT
  Age: 57 Year
  Sex: Female

DRUGS (6)
  1. METHOTREXATE [Suspect]
     Active Substance: METHOTREXATE
     Indication: Rheumatoid arthritis
     Dosage: UNK
     Dates: start: 2020
  2. RITUXIMAB [Suspect]
     Active Substance: RITUXIMAB
     Indication: Systemic scleroderma
     Dosage: UNK
     Dates: start: 2020, end: 2020
  3. METHYLPREDNISOLONE [Suspect]
     Active Substance: METHYLPREDNISOLONE
     Indication: Systemic scleroderma
     Dosage: BOLUS
     Dates: start: 2020
  4. BOSENTAN [Concomitant]
     Active Substance: BOSENTAN
     Indication: Rheumatoid arthritis
     Dosage: UNK
     Dates: start: 2020
  5. HEPARIN [Concomitant]
     Active Substance: HEPARIN SODIUM
     Indication: Prophylaxis
     Dosage: UNK
  6. METHYLPREDNISOLONE [Suspect]
     Active Substance: METHYLPREDNISOLONE
     Indication: Systemic scleroderma
     Dosage: 12 MG
     Dates: start: 2020

REACTIONS (8)
  - Interstitial lung disease [Recovering/Resolving]
  - Pleural effusion [Recovered/Resolved]
  - Dyspnoea [Unknown]
  - Thrombocytosis [Unknown]
  - Anaemia [Unknown]
  - Leukocytosis [Unknown]
  - Inflammation [Unknown]
  - Fibrin D dimer increased [Unknown]

NARRATIVE: CASE EVENT DATE: 20200101
